FAERS Safety Report 9801725 (Version 1)
Quarter: 2014Q1

REPORT INFORMATION
  Report Type: Spontaneous
  Country: US (occurrence: US)
  Receive Date: 20140107
  Receipt Date: 20140107
  Transmission Date: 20141002
  Serious: Yes (Hospitalization)
  Sender: FDA-Public Use
  Company Number: PHHY2013US154836

PATIENT
  Age: 53 Year
  Sex: Male

DRUGS (2)
  1. CLOZAPINE [Suspect]
     Indication: SCHIZOPHRENIA, PARANOID TYPE
  2. VALPROIC ACID [Suspect]
     Indication: SCHIZOPHRENIA, PARANOID TYPE

REACTIONS (4)
  - Abnormal behaviour [Unknown]
  - Pleural effusion [Recovered/Resolved]
  - Tachypnoea [Unknown]
  - Eosinophilia [Recovered/Resolved]
